FAERS Safety Report 18100635 (Version 2)
Quarter: 2020Q4

REPORT INFORMATION
  Report Type: Spontaneous
  Country: US (occurrence: US)
  Receive Date: 20200731
  Receipt Date: 20201029
  Transmission Date: 20210113
  Serious: Yes (Other)
  Sender: FDA-Public Use
  Company Number: US-SA-2020SA196135

PATIENT

DRUGS (19)
  1. LORAZEPAM. [Concomitant]
     Active Substance: LORAZEPAM
     Dosage: UNK
     Dates: start: 2009
  2. TAXOTERE [Suspect]
     Active Substance: DOCETAXEL
     Dosage: 75 MG, Q3W
     Route: 065
     Dates: start: 20160322, end: 20160322
  3. MELATONIN [Concomitant]
     Active Substance: MELATONIN
     Dosage: UNK
     Dates: start: 201001
  4. BUPROPION. [Concomitant]
     Active Substance: BUPROPION
     Dosage: UNK
     Dates: start: 20150101
  5. HERCEPTIN [Concomitant]
     Active Substance: TRASTUZUMAB
     Dosage: UNK
     Dates: start: 20160322, end: 20160322
  6. TAXOTERE [Suspect]
     Active Substance: DOCETAXEL
     Indication: INVASIVE DUCTAL BREAST CARCINOMA
     Dosage: 75 MG, Q3W
     Route: 065
     Dates: start: 20151130, end: 20151130
  7. MELATONIN [Concomitant]
     Active Substance: MELATONIN
     Dosage: UNK
     Dates: start: 2009
  8. VITAMINS NOS [Concomitant]
     Active Substance: VITAMINS
     Dosage: UNK
     Dates: start: 2009
  9. ARIPIPRAZOLE. [Concomitant]
     Active Substance: ARIPIPRAZOLE
     Dosage: UNK
     Dates: start: 2009
  10. LORAZEPAM. [Concomitant]
     Active Substance: LORAZEPAM
     Dosage: UNK
     Dates: start: 20150101
  11. HERCEPTIN [Concomitant]
     Active Substance: TRASTUZUMAB
     Indication: INVASIVE DUCTAL BREAST CARCINOMA
     Dosage: UNK
     Dates: start: 20151130, end: 20151130
  12. PERJETA [Concomitant]
     Active Substance: PERTUZUMAB
     Indication: INVASIVE DUCTAL BREAST CARCINOMA
     Dosage: UNK
     Dates: start: 201511, end: 201604
  13. MIRTAZAPINE. [Concomitant]
     Active Substance: MIRTAZAPINE
     Dosage: UNK
     Dates: start: 2009
  14. MIRTAZAPINE. [Concomitant]
     Active Substance: MIRTAZAPINE
     Dosage: UNK
     Dates: start: 20150101
  15. BUPROPION. [Concomitant]
     Active Substance: BUPROPION
     Dosage: UNK
     Dates: start: 2009
  16. PARAPLATIN [Concomitant]
     Active Substance: CARBOPLATIN
     Indication: INVASIVE DUCTAL BREAST CARCINOMA
     Dosage: UNK
     Dates: start: 201511, end: 201604
  17. CARBOPLATIN. [Concomitant]
     Active Substance: CARBOPLATIN
     Indication: INVASIVE DUCTAL BREAST CARCINOMA
     Dosage: UNK
     Dates: start: 20151130, end: 20151130
  18. ARIPIPRAZOLE. [Concomitant]
     Active Substance: ARIPIPRAZOLE
     Dosage: UNK
     Dates: start: 20150101
  19. CARBOPLATIN. [Concomitant]
     Active Substance: CARBOPLATIN
     Dosage: UNK
     Dates: start: 20160322, end: 20160322

REACTIONS (2)
  - Psychological trauma [Unknown]
  - Alopecia [Recovering/Resolving]

NARRATIVE: CASE EVENT DATE: 2016
